FAERS Safety Report 5281167-2 (Version None)
Quarter: 2007Q1

REPORT INFORMATION
  Report Type: 
  Country: None (occurrence: None)
  Receive Date: 20070329
  Receipt Date: 20070322
  Transmission Date: 20070707
  Serious: Yes (Other)
  Sender: FDA-Public Use
  Company Number: SG-MERCK-0703SGP00017

PATIENT
  Sex: Female
  Weight: 72 kg

DRUGS (2)
  1. EMEND [Suspect]
     Indication: PROPHYLAXIS OF NAUSEA AND VOMITING
     Route: 048
     Dates: start: 20070315, end: 20070316
  2. EMEND [Suspect]
     Route: 048
     Dates: start: 20070314, end: 20070314

REACTIONS (1)
  - CONVULSION [None]
